FAERS Safety Report 13251987 (Version 3)
Quarter: 2017Q2

REPORT INFORMATION
  Report Type: Spontaneous
  Country: DK (occurrence: DK)
  Receive Date: 20170220
  Receipt Date: 20170404
  Transmission Date: 20170830
  Serious: Yes (Death, Life-Threatening, Hospitalization, Other)
  Sender: FDA-Public Use
  Company Number: DK-VALIDUS PHARMACEUTICALS LLC-DK-2017VAL000209

PATIENT
  Age: 84 Year
  Sex: Male
  Weight: 98 kg

DRUGS (12)
  1. TRANDOLAPRIL. [Suspect]
     Active Substance: TRANDOLAPRIL
     Indication: SUICIDE ATTEMPT
     Dosage: UNK (HARD-GELATIN CAPSULE)
     Route: 048
  2. MIRTAZAPINE. [Suspect]
     Active Substance: MIRTAZAPINE
     Indication: SUICIDE ATTEMPT
     Dosage: UNK
     Route: 048
  3. DIAZEPAM. [Concomitant]
     Active Substance: DIAZEPAM
     Indication: PRODUCT USED FOR UNKNOWN INDICATION
     Dosage: UNK
  4. OXAZEPAM. [Suspect]
     Active Substance: OXAZEPAM
     Indication: SUICIDE ATTEMPT
     Dosage: UNK
     Route: 048
  5. NIFEDIPINE. [Suspect]
     Active Substance: NIFEDIPINE
     Indication: SUICIDE ATTEMPT
     Dosage: UNK
     Route: 048
  6. METOPROLOL TARTRATE. [Suspect]
     Active Substance: METOPROLOL TARTRATE
     Indication: SUICIDE ATTEMPT
     Dosage: UNK
     Route: 048
  7. IVABRADINE [Suspect]
     Active Substance: IVABRADINE
     Indication: SUICIDE ATTEMPT
     Dosage: UNK
     Route: 048
  8. LIDOCAINE. [Concomitant]
     Active Substance: LIDOCAINE
     Indication: PRODUCT USED FOR UNKNOWN INDICATION
     Dosage: UNK
  9. SIMVASTATIN. [Suspect]
     Active Substance: SIMVASTATIN
     Indication: SUICIDE ATTEMPT
     Dosage: UNK
     Route: 048
  10. PARACETAMOL [Suspect]
     Active Substance: ACETAMINOPHEN
     Indication: SUICIDE ATTEMPT
     Dosage: UNK
     Route: 048
  11. ACETYLSALICYLIC ACID [Suspect]
     Active Substance: ASPIRIN
     Indication: SUICIDE ATTEMPT
     Dosage: UNK
     Route: 048
  12. N ACETYL L CYSTEIN [Suspect]
     Active Substance: ACETYLCYSTEINE
     Indication: SUICIDE ATTEMPT
     Dosage: UNK
     Route: 042

REACTIONS (14)
  - Mental status changes [Unknown]
  - Oesophageal obstruction [Fatal]
  - Respiratory disorder [Unknown]
  - Body temperature increased [Unknown]
  - Toxicity to various agents [Fatal]
  - Intentional overdose [Fatal]
  - Bezoar [Fatal]
  - Pneumonia aspiration [Unknown]
  - Oesophageal haemorrhage [Unknown]
  - Product use issue [Unknown]
  - Loss of consciousness [Unknown]
  - General physical health deterioration [Unknown]
  - Hypotension [Unknown]
  - Cardiovascular disorder [Unknown]
